FAERS Safety Report 7419875-7 (Version None)
Quarter: 2011Q2

REPORT INFORMATION
  Report Type: 
  Country: None (occurrence: None)
  Receive Date: 20110413
  Receipt Date: 20110413
  Transmission Date: 20111010
  Serious: Yes (Life-Threatening, Hospitalization, Disabling)
  Sender: FDA-Public Use
  Company Number: None

PATIENT
  Age: 66 Year
  Sex: Female

DRUGS (1)
  1. CRESTOR [Suspect]
     Indication: BLOOD CHOLESTEROL INCREASED
     Dosage: 10MG 1 NIGHTLY
     Dates: start: 20091216, end: 20110301

REACTIONS (5)
  - DYSSTASIA [None]
  - MYALGIA [None]
  - MUSCLE SPASMS [None]
  - PAIN [None]
  - FALL [None]
